FAERS Safety Report 9284187 (Version 1)
Quarter: 2013Q2

REPORT INFORMATION
  Report Type: Spontaneous
  Country: BR (occurrence: None)
  Receive Date: 20130502
  Receipt Date: 20130502
  Transmission Date: 20140414
  Serious: Yes (Other)
  Sender: FDA-Public Use
  Company Number: 2013-001308

PATIENT
  Age: 91 Year
  Sex: Female

DRUGS (6)
  1. ACTONEL (RISEDRONATE SODIUM) TABLET, 150MG [Suspect]
     Dosage: ONCE
     Route: 048
     Dates: start: 2012
  2. LABIRIN (BETAHISTINE HYDROCHLORIDE) [Concomitant]
  3. ARADOIS (LOSARTAN POTASSIUM), 50 MG [Concomitant]
  4. CRESTOR (ROSUVASTATIN CALCIUM) [Concomitant]
  5. CITONEURIN /00176001/CYANOCOBALAMIN, PYRIDOXINE HYDROCHLORIDE, THIAMINE HYDROCHLORIDE) [Concomitant]
  6. COLECALCIFEROL (COLECALCIFEROL) [Concomitant]

REACTIONS (2)
  - Weight decreased [None]
  - Decreased appetite [None]
